FAERS Safety Report 7059906-X (Version None)
Quarter: 2010Q4

REPORT INFORMATION
  Report Type: 
  Country: None (occurrence: None)
  Receive Date: 20101025
  Receipt Date: 20101020
  Transmission Date: 20110411
  Serious: Yes (Other)
  Sender: FDA-Public Use
  Company Number: PHHY2010DE05599

PATIENT
  Sex: Female

DRUGS (1)
  1. ESTRADERM [Suspect]
     Dosage: 50 UG/24 HOUR, ONCE DAILY
     Route: 062
     Dates: start: 20091101, end: 20100121

REACTIONS (5)
  - ARRHYTHMIA [None]
  - HYPERTENSION [None]
  - PAIN IN EXTREMITY [None]
  - PRURITUS [None]
  - RENAL DISORDER [None]
